FAERS Safety Report 7830228-X (Version None)
Quarter: 2011Q4

REPORT INFORMATION
  Report Type: 
  Country: None (occurrence: None)
  Receive Date: 20111021
  Receipt Date: 20111018
  Transmission Date: 20120403
  Serious: Yes (Death, Hospitalization, Other)
  Sender: FDA-Public Use
  Company Number: PHHY2011JP77346

PATIENT
  Sex: Female

DRUGS (4)
  1. VALSARTAN [Suspect]
     Indication: HYPERTENSION
     Dosage: 160 MG, QD
     Route: 048
     Dates: start: 20080811, end: 20100324
  2. MICARDIS [Concomitant]
     Indication: HYPERTENSION
     Dosage: 40 MG, UNK
     Route: 048
     Dates: start: 20060220, end: 20080810
  3. VALSARTAN [Suspect]
     Dosage: 80 MG, QD
     Route: 048
     Dates: start: 20100325, end: 20100623
  4. VALSARTAN [Suspect]
     Dosage: 40 MG, QD
     Route: 048
     Dates: start: 20100624, end: 20100630

REACTIONS (4)
  - BLOOD PRESSURE SYSTOLIC INCREASED [None]
  - ASTHENIA [None]
  - MALIGNANT PALATE NEOPLASM [None]
  - BLOOD PRESSURE DIASTOLIC DECREASED [None]
